FAERS Safety Report 4547151-9 (Version None)
Quarter: 2005Q1

REPORT INFORMATION
  Report Type: 
  Country: None (occurrence: None)
  Receive Date: 20050105
  Receipt Date: 20041222
  Transmission Date: 20050727
  Serious: Yes (Hospitalization)
  Sender: FDA-Public Use
  Company Number: 200416243BCC

PATIENT
  Age: 47 Year
  Sex: Male

DRUGS (2)
  1. ALEVE [Suspect]
     Indication: ARTHRALGIA
     Dosage: 220 MG , BIW, ORAL
     Route: 048
  2. ALBUTEROL [Concomitant]

REACTIONS (1)
  - CHEST PAIN [None]
